FAERS Safety Report 19701725 (Version 2)
Quarter: 2023Q1

REPORT INFORMATION
  Report Type: Spontaneous
  Country: US (occurrence: PL)
  Receive Date: 20210813
  Receipt Date: 20230207
  Transmission Date: 20230418
  Serious: Yes (Death, Other)
  Sender: FDA-Public Use
  Company Number: US-JNJFOC-20210814922

PATIENT

DRUGS (1)
  1. IMBRUVICA [Suspect]
     Active Substance: IBRUTINIB
     Indication: Chronic lymphocytic leukaemia
     Route: 048

REACTIONS (39)
  - Death [Fatal]
  - Richter^s syndrome [Unknown]
  - Cardiac arrest [Unknown]
  - Atrial fibrillation [Unknown]
  - Atrial flutter [Unknown]
  - Haemorrhage [Unknown]
  - Neutropenia [Unknown]
  - Thrombocytopenia [Unknown]
  - Pneumonia [Unknown]
  - Ventricular arrhythmia [Unknown]
  - Ventricular fibrillation [Unknown]
  - Second primary malignancy [Unknown]
  - Cardiac disorder [Unknown]
  - Diarrhoea [Unknown]
  - Arthralgia [Unknown]
  - Contusion [Unknown]
  - Back pain [Unknown]
  - Muscle spasms [Unknown]
  - Dyspepsia [Unknown]
  - Headache [Unknown]
  - Cough [Unknown]
  - Upper respiratory tract infection [Unknown]
  - Pyrexia [Unknown]
  - Anaemia [Unknown]
  - Fatigue [Unknown]
  - Hypertension [Unknown]
  - Nausea [Unknown]
  - Dyspnoea [Unknown]
  - Bronchitis [Unknown]
  - Constipation [Unknown]
  - Nasopharyngitis [Unknown]
  - Dizziness [Unknown]
  - Vomiting [Unknown]
  - Oedema peripheral [Unknown]
  - Rash [Unknown]
  - Myalgia [Unknown]
  - Urinary tract infection [Unknown]
  - Epistaxis [Unknown]
  - Ventricular extrasystoles [Unknown]
